FAERS Safety Report 21498935 (Version 1)
Quarter: 2022Q4

REPORT INFORMATION
  Report Type: Spontaneous
  Country: US (occurrence: US)
  Receive Date: 20221024
  Receipt Date: 20221024
  Transmission Date: 20230113
  Serious: No
  Sender: FDA-Public Use
  Company Number: US-HBP-2022US027727

PATIENT
  Age: 39 Year
  Sex: Female

DRUGS (1)
  1. VALCHLOR [Suspect]
     Active Substance: MECHLORETHAMINE
     Indication: Cutaneous T-cell lymphoma
     Dosage: THIN FILM, TO FULL BODY AT NIGHTTIME AND WASHING OFF IN THE MORNING
     Route: 061
     Dates: start: 202011, end: 20220927

REACTIONS (2)
  - Application site hyperaesthesia [Recovered/Resolved]
  - Application site urticaria [Recovered/Resolved]

NARRATIVE: CASE EVENT DATE: 20220927
